FAERS Safety Report 18311112 (Version 1)
Quarter: 2020Q3

REPORT INFORMATION
  Report Type: Spontaneous
  Country: US (occurrence: US)
  Receive Date: 20200924
  Receipt Date: 20200924
  Transmission Date: 20201103
  Serious: No
  Sender: FDA-Public Use
  Company Number: None

PATIENT
  Age: 77 Year
  Sex: Female

DRUGS (1)
  1. PROMACTA [Suspect]
     Active Substance: ELTROMBOPAG OLAMINE
     Route: 048
     Dates: start: 202008, end: 20200814

REACTIONS (4)
  - Gait disturbance [None]
  - Limb discomfort [None]
  - Visual impairment [None]
  - Pain in extremity [None]

NARRATIVE: CASE EVENT DATE: 20200831
